FAERS Safety Report 12932440 (Version 2)
Quarter: 2016Q4

REPORT INFORMATION
  Report Type: Spontaneous
  Country: CA (occurrence: CA)
  Receive Date: 20161111
  Receipt Date: 20161121
  Transmission Date: 20170207
  Serious: Yes (Other)
  Sender: FDA-Public Use
  Company Number: CA-AMGEN-CANSP2016155218

PATIENT
  Age: 59 Year
  Sex: Female

DRUGS (5)
  1. METHOTREXATE. [Concomitant]
     Active Substance: METHOTREXATE
     Indication: RHEUMATOID ARTHRITIS
     Dosage: 20 MG, Q WEEKLY
     Route: 048
     Dates: start: 2002, end: 2005
  2. ARAVA [Concomitant]
     Active Substance: LEFLUNOMIDE
     Indication: PRODUCT USED FOR UNKNOWN INDICATION
     Dosage: 20 MG, UNK
     Route: 065
     Dates: start: 2004, end: 2006
  3. SULFASALAZINE. [Concomitant]
     Active Substance: SULFASALAZINE
     Indication: RHEUMATOID ARTHRITIS
     Dosage: 1.5 G, BID
     Route: 048
     Dates: start: 2001
  4. PREDNISONE. [Concomitant]
     Active Substance: PREDNISONE
     Dosage: 10-15 MG, QD
     Route: 048
  5. ENBREL [Suspect]
     Active Substance: ETANERCEPT
     Indication: RHEUMATOID ARTHRITIS
     Dosage: 50 MG, Q WEEKLY
     Route: 058
     Dates: start: 2005, end: 20161009

REACTIONS (13)
  - C-reactive protein abnormal [Unknown]
  - Joint swelling [Unknown]
  - Arthropathy [Unknown]
  - Musculoskeletal pain [Unknown]
  - Pain in extremity [Unknown]
  - Dermatitis allergic [Unknown]
  - Arthralgia [Unknown]
  - Hypertension [Unknown]
  - Skin infection [Unknown]
  - Rheumatoid arthritis [Unknown]
  - Rash [Unknown]
  - Foot deformity [Unknown]
  - Abasia [Unknown]

NARRATIVE: CASE EVENT DATE: 20160914
